FAERS Safety Report 9814414 (Version 1)
Quarter: 2014Q1

REPORT INFORMATION
  Report Type: Report from Study
  Country: BR (occurrence: BR)
  Receive Date: 20140113
  Receipt Date: 20140113
  Transmission Date: 20141002
  Serious: Yes (Death, Hospitalization, Other)
  Sender: FDA-Public Use
  Company Number: PHHY2014BR002469

PATIENT
  Sex: Male
  Weight: 64 kg

DRUGS (1)
  1. ACLASTA [Suspect]
     Indication: OSTEOPOROSIS
     Dosage: 5 MG
     Route: 042
     Dates: start: 2012

REACTIONS (4)
  - Death [Fatal]
  - Gastrointestinal inflammation [Unknown]
  - Diverticular perforation [Unknown]
  - Pain [Unknown]
